FAERS Safety Report 9139671 (Version 1)
Quarter: 2013Q1

REPORT INFORMATION
  Report Type: Spontaneous
  Country: ES (occurrence: ES)
  Receive Date: 20130305
  Receipt Date: 20130305
  Transmission Date: 20140127
  Serious: Yes (Other)
  Sender: FDA-Public Use
  Company Number: ES-JNJFOC-20130214098

PATIENT
  Sex: 0

DRUGS (1)
  1. METHYLPHENIDATE HCL [Suspect]
     Indication: ASPERGER^S DISORDER
     Route: 048

REACTIONS (2)
  - Stereotypy [Unknown]
  - Off label use [Unknown]
